FAERS Safety Report 8345600-1 (Version None)
Quarter: 2012Q2

REPORT INFORMATION
  Report Type: 
  Country: None (occurrence: None)
  Receive Date: 20120508
  Receipt Date: 20120502
  Transmission Date: 20120825
  Serious: Yes (Hospitalization)
  Sender: FDA-Public Use
  Company Number: US-ROCHE-1060087

PATIENT

DRUGS (20)
  1. MABTHERA [Suspect]
     Indication: RHEUMATOID ARTHRITIS
     Dosage: LAST DOSE PRIOR TO ADVERSE EVENT 01 MAR 2012
     Route: 042
     Dates: start: 20120216
  2. GLIPIZIDE [Concomitant]
     Indication: TYPE 2 DIABETES MELLITUS
     Route: 048
     Dates: start: 19970101
  3. PREDNISOLONE [Concomitant]
     Indication: RHEUMATOID ARTHRITIS
     Route: 048
     Dates: start: 20020101
  4. METHOTREXATE [Suspect]
     Indication: RHEUMATOID ARTHRITIS
     Route: 048
     Dates: start: 20100501
  5. METOPROLOL SUCCINATE [Concomitant]
     Indication: HYPERTENSION
     Route: 048
     Dates: start: 20050101
  6. ESTRADIOL [Concomitant]
     Indication: MENOPAUSE
     Route: 048
     Dates: start: 20091001
  7. CALCIUM CARBONATE/VITAMIN D NOS [Concomitant]
     Route: 048
     Dates: start: 20050427
  8. ADALIMUMAB [Concomitant]
     Indication: RHEUMATOID ARTHRITIS
     Route: 058
     Dates: start: 20110101
  9. LISINOPRIL [Concomitant]
     Indication: HYPERTENSION
     Route: 048
     Dates: start: 19870901
  10. SITAGLIPTIN [Concomitant]
     Indication: TYPE 2 DIABETES MELLITUS
     Route: 048
     Dates: start: 20091201
  11. ACETYLSALICYLIC ACID SRT [Concomitant]
     Route: 048
     Dates: start: 20100101
  12. VITAMIN D [Concomitant]
     Indication: HYPERVITAMINOSIS
     Route: 048
     Dates: start: 20100101
  13. BUMETANIDE [Concomitant]
     Route: 048
     Dates: start: 20101201
  14. NAPROXEN [Concomitant]
     Indication: PAIN
     Dosage: BID PRN
     Route: 048
     Dates: start: 20090801
  15. SERTRALINE HYDROCHLORIDE [Concomitant]
     Indication: ANXIETY
     Route: 048
     Dates: start: 20111101, end: 20120401
  16. TRAMADOL HCL [Concomitant]
     Indication: RHEUMATOID ARTHRITIS
     Dosage: PRN , 2-3 WK
     Route: 048
     Dates: start: 20110901
  17. LANTUS [Concomitant]
     Indication: TYPE 2 DIABETES MELLITUS
     Dosage: QHS
     Route: 058
     Dates: start: 20100101
  18. FOLIC ACID [Concomitant]
     Indication: RHEUMATOID ARTHRITIS
     Route: 048
     Dates: start: 20050101
  19. MULTI-VITAMIN [Concomitant]
     Indication: PROPHYLAXIS
     Dosage: 1 TAB
     Route: 048
     Dates: start: 19820101
  20. ATORVASTATIN CALCIUM [Concomitant]
     Indication: HYPERCHOLESTEROLAEMIA
     Route: 048
     Dates: start: 20090201

REACTIONS (1)
  - CARDIAC FAILURE CONGESTIVE [None]
